FAERS Safety Report 9475492 (Version 20)
Quarter: 2017Q1

REPORT INFORMATION
  Report Type: Report from Study
  Country: CA (occurrence: CA)
  Receive Date: 20130826
  Receipt Date: 20170117
  Transmission Date: 20170429
  Serious: Yes (Other)
  Sender: FDA-Public Use
  Company Number: CA-ROCHE-1142499

PATIENT
  Age: 53 Year
  Sex: Female
  Weight: 98 kg

DRUGS (18)
  1. ACTEMRA [Suspect]
     Active Substance: TOCILIZUMAB
     Route: 042
     Dates: start: 20140917
  2. NOVO-ATENOL [Concomitant]
     Indication: HYPERTENSION
  3. ACTEMRA [Suspect]
     Active Substance: TOCILIZUMAB
     Indication: RHEUMATOID ARTHRITIS
     Route: 042
     Dates: start: 20101104
  4. ACTEMRA [Suspect]
     Active Substance: TOCILIZUMAB
     Route: 042
     Dates: start: 20130620
  5. ACTEMRA [Suspect]
     Active Substance: TOCILIZUMAB
     Route: 042
     Dates: start: 20120118
  6. ACTEMRA [Suspect]
     Active Substance: TOCILIZUMAB
     Route: 042
     Dates: start: 20160428
  7. ACTEMRA [Suspect]
     Active Substance: TOCILIZUMAB
     Route: 042
     Dates: start: 20141211
  8. ACTEMRA [Suspect]
     Active Substance: TOCILIZUMAB
     Route: 042
     Dates: start: 20150113
  9. ACTEMRA [Suspect]
     Active Substance: TOCILIZUMAB
     Route: 042
     Dates: start: 20150210
  10. ACTEMRA [Suspect]
     Active Substance: TOCILIZUMAB
     Route: 042
     Dates: start: 20151202
  11. METHOTREXATE. [Concomitant]
     Active Substance: METHOTREXATE
  12. ACTEMRA [Suspect]
     Active Substance: TOCILIZUMAB
     Route: 042
     Dates: start: 20120221
  13. ACTEMRA [Suspect]
     Active Substance: TOCILIZUMAB
     Route: 042
     Dates: start: 20140723
  14. ACTEMRA [Suspect]
     Active Substance: TOCILIZUMAB
     Route: 042
     Dates: start: 20131211
  15. ACTEMRA [Suspect]
     Active Substance: TOCILIZUMAB
     Route: 042
     Dates: start: 20111215
  16. ACTEMRA [Suspect]
     Active Substance: TOCILIZUMAB
     Route: 042
     Dates: start: 20130124
  17. ELTROXIN [Concomitant]
     Active Substance: LEVOTHYROXINE
     Route: 065
  18. NOVO-ATENOL [Concomitant]
     Indication: PALPITATIONS
     Route: 048

REACTIONS (15)
  - Herpes zoster [Recovered/Resolved]
  - Nerve compression [Unknown]
  - Hypotension [Unknown]
  - Weight decreased [Recovered/Resolved]
  - Heart rate increased [Unknown]
  - Heart rate decreased [Unknown]
  - Malaise [Not Recovered/Not Resolved]
  - Blood pressure diastolic decreased [Unknown]
  - Underdose [Unknown]
  - Respiratory rate decreased [Unknown]
  - Infusion related reaction [Unknown]
  - Nasopharyngitis [Not Recovered/Not Resolved]
  - Heart rate decreased [Unknown]
  - Weight increased [Unknown]
  - Heart rate irregular [Unknown]

NARRATIVE: CASE EVENT DATE: 20121003
